FAERS Safety Report 4359456-5 (Version None)
Quarter: 2004Q2

REPORT INFORMATION
  Report Type: 
  Country: None (occurrence: None)
  Receive Date: 20040512
  Receipt Date: 20040503
  Transmission Date: 20050107
  Serious: Yes (Hospitalization, Other)
  Sender: FDA-Public Use
  Company Number: US-JNJFOC-20040404839

PATIENT
  Age: 47 Year
  Sex: Female

DRUGS (13)
  1. DURAGESIC [Suspect]
     Indication: PAIN
     Dosage: 25 UG/HR TRANSDERMAL; 50 UG/HR, TRANSDERMAL; 75 UG/HR, TRANSDERMAL
     Route: 062
     Dates: start: 20030805, end: 20031104
  2. DURAGESIC [Suspect]
     Indication: PAIN
     Dosage: 25 UG/HR TRANSDERMAL; 50 UG/HR, TRANSDERMAL; 75 UG/HR, TRANSDERMAL
     Route: 062
     Dates: start: 20041104, end: 20040223
  3. DURAGESIC [Suspect]
     Indication: PAIN
     Dosage: 25 UG/HR TRANSDERMAL; 50 UG/HR, TRANSDERMAL; 75 UG/HR, TRANSDERMAL
     Route: 062
     Dates: start: 20040223, end: 20040301
  4. DURAGESIC [Suspect]
     Indication: PAIN
     Dosage: 25 UG/HR TRANSDERMAL; 50 UG/HR, TRANSDERMAL; 75 UG/HR, TRANSDERMAL
     Route: 062
     Dates: start: 20040301
  5. XYREM (OXYBATE SODIUM) [Suspect]
     Indication: SLEEP DISORDER
  6. PROZAC (FLUOXETINE HYDROCHLORIDE) TABLETS [Concomitant]
  7. RELAFEN [Concomitant]
  8. PROTONIX (PANTOPRAZOLE) TABLETS [Concomitant]
  9. PERMAX (PERGOLIDE MESILATE) TABLETS [Concomitant]
  10. TRAZODONE (TRAZODONE) TABLETS [Concomitant]
  11. MIRALEX (MACROGOL) TABLETS [Concomitant]
  12. OXYCODONE/ACETAMINOPHEN (OXYCOCET) [Concomitant]
  13. TRILEPTAL [Concomitant]

REACTIONS (7)
  - FALL [None]
  - FATIGUE [None]
  - HYPERHIDROSIS [None]
  - MEDICATION ERROR [None]
  - PHARMACEUTICAL PRODUCT COMPLAINT [None]
  - SLEEP DISORDER [None]
  - SPINAL FRACTURE [None]
